FAERS Safety Report 9132798 (Version 1)
Quarter: 2013Q1

REPORT INFORMATION
  Report Type: Spontaneous
  Country: PL (occurrence: PL)
  Receive Date: 20130301
  Receipt Date: 20130301
  Transmission Date: 20140127
  Serious: Yes (Other)
  Sender: FDA-Public Use
  Company Number: PL-PFIZER INC-2013069032

PATIENT
  Age: 43 Year
  Sex: Female

DRUGS (8)
  1. RISPERIDONE [Suspect]
     Indication: SCHIZOPHRENIA
     Dosage: UP TO 9 MG/DAY
  2. VALPROATE SEMISODIUM [Suspect]
  3. QUETIAPINE [Suspect]
     Indication: SCHIZOPHRENIA
     Dosage: UPTO 800 MG/DAY
  4. OLANZAPINE [Suspect]
     Indication: SCHIZOPHRENIA
     Dosage: UP TO 15 MG/DAY
  5. ZIPRASIDONE HCL [Suspect]
     Indication: SCHIZOPHRENIA
     Dosage: UP TO 160MG/DAY
  6. ARIPIPRAZOLE [Suspect]
     Indication: SCHIZOPHRENIA
     Dosage: UP TO  30 MG/DAY
  7. AMISULPRIDE [Suspect]
     Indication: SCHIZOPHRENIA
     Dosage: UPTO 600 MG/DAY
  8. SULPIRIDE [Suspect]
     Indication: SCHIZOPHRENIA
     Dosage: UP TO 400 MG/DAY

REACTIONS (7)
  - Extrapyramidal disorder [Unknown]
  - Hyperprolactinaemia [Recovered/Resolved]
  - Agitation [Unknown]
  - Hypotension [Recovering/Resolving]
  - White blood cell count decreased [Recovered/Resolved]
  - Electrocardiogram QT shortened [Unknown]
  - Drug ineffective [Unknown]
